FAERS Safety Report 5961032-5 (Version None)
Quarter: 2008Q4

REPORT INFORMATION
  Report Type: 
  Country: None (occurrence: None)
  Receive Date: 20081121
  Receipt Date: 20080718
  Transmission Date: 20090506
  Serious: No
  Sender: FDA-Public Use
  Company Number: A0738451A

PATIENT
  Age: 61 Year
  Sex: Female

DRUGS (3)
  1. LANOXIN [Suspect]
     Indication: CARDIAC FAILURE
     Dosage: 1TAB TWICE PER DAY
     Route: 048
  2. BLOOD PRESSURE MEDICATION [Concomitant]
  3. FUROSEMIDE [Concomitant]

REACTIONS (6)
  - DYSPNOEA [None]
  - EYE IRRITATION [None]
  - HEADACHE [None]
  - LACRIMATION INCREASED [None]
  - OCULAR HYPERAEMIA [None]
  - WEIGHT DECREASED [None]
